FAERS Safety Report 12606398 (Version 1)
Quarter: 2016Q3

REPORT INFORMATION
  Report Type: Spontaneous
  Country: US (occurrence: None)
  Receive Date: 20160728
  Receipt Date: 20160728
  Transmission Date: 20161109
  Serious: Yes (Hospitalization)
  Sender: FDA-Public Use
  Company Number: None

PATIENT
  Age: 37 Year
  Sex: Male

DRUGS (14)
  1. PROVOCHOLINE [Concomitant]
     Active Substance: METHACHOLINE CHLORIDE
  2. COREG [Concomitant]
     Active Substance: CARVEDILOL
  3. ALTACE [Concomitant]
     Active Substance: RAMIPRIL
  4. HYDROCO/APAP [Suspect]
     Active Substance: ACETAMINOPHEN\HYDROCODONE
  5. AMPHET/DEXT [Concomitant]
  6. CIALIS [Concomitant]
     Active Substance: TADALAFIL
  7. METHOTREXATE. [Concomitant]
     Active Substance: METHOTREXATE
  8. NOVOLOG [Concomitant]
     Active Substance: INSULIN ASPART
  9. OXYCODONE AND ACETAMINOPHEN [Concomitant]
     Active Substance: ACETAMINOPHEN\OXYCODONE HYDROCHLORIDE
  10. R-GENE [Concomitant]
     Active Substance: ARGININE HYDROCHLORIDE
  11. VIAGRA [Concomitant]
     Active Substance: SILDENAFIL CITRATE
  12. ZOLOFT [Concomitant]
     Active Substance: SERTRALINE HYDROCHLORIDE
  13. GENOTROPIN [Suspect]
     Active Substance: SOMATROPIN
     Indication: ENDOCRINE DISORDER
     Route: 058
     Dates: start: 201304
  14. LEVITRA [Concomitant]
     Active Substance: VARDENAFIL HYDROCHLORIDE TRIHYDRATE

REACTIONS (1)
  - Arthralgia [None]

NARRATIVE: CASE EVENT DATE: 201607
